FAERS Safety Report 25899131 (Version 1)
Quarter: 2025Q4

REPORT INFORMATION
  Report Type: Spontaneous
  Country: EU (occurrence: EU)
  Receive Date: 20251009
  Receipt Date: 20251009
  Transmission Date: 20260118
  Serious: Yes (Other)
  Sender: AUROBINDO
  Company Number: EU-PFIZER INC-202500187082

PATIENT
  Age: 78 Year
  Sex: Male

DRUGS (2)
  1. DOCETAXEL [Suspect]
     Active Substance: DOCETAXEL
     Indication: Hormone-dependent prostate cancer
     Dosage: UNK (UNK, 6 CYCLES)
     Route: 065
     Dates: start: 202309, end: 20231212
  2. DAROLUTAMIDE [Suspect]
     Active Substance: DAROLUTAMIDE
     Indication: Hormone-dependent prostate cancer
     Dosage: 1200 MILLIGRAM, ONCE A DAY (600 MG, 2X/DAY)
     Route: 065

REACTIONS (6)
  - Metastases to bone [Unknown]
  - Metastases to lymph nodes [Unknown]
  - Malignant neoplasm progression [Unknown]
  - Nail toxicity [Unknown]
  - Alopecia [Unknown]
  - Hypertension [Unknown]

NARRATIVE: CASE EVENT DATE: 20231201
